FAERS Safety Report 5031396-8 (Version None)
Quarter: 2006Q2

REPORT INFORMATION
  Report Type: 
  Country: None (occurrence: None)
  Receive Date: 20060621
  Receipt Date: 20060610
  Transmission Date: 20061013
  Serious: Yes (Death, Hospitalization, Disabling)
  Sender: FDA-Public Use
  Company Number: JO-MERCK-0606USA01764

PATIENT
  Age: 82 Year
  Sex: Male
  Weight: 86 kg

DRUGS (3)
  1. PRIMAXIN [Suspect]
     Indication: PNEUMONIA
     Route: 042
     Dates: start: 20060401
  2. NEXIUM [Concomitant]
     Route: 065
  3. CORTICOSTEROIDS (UNSPECIFIED) [Concomitant]
     Route: 065

REACTIONS (3)
  - RESPIRATORY ARREST [None]
  - SEPSIS [None]
  - THROMBOCYTOPENIA [None]
